FAERS Safety Report 11094859 (Version 1)
Quarter: 2015Q2

REPORT INFORMATION
  Report Type: Spontaneous
  Country: CH (occurrence: CH)
  Receive Date: 20150506
  Receipt Date: 20150506
  Transmission Date: 20150821
  Serious: Yes (Hospitalization)
  Sender: FDA-Public Use
  Company Number: CH-LPDUSPRD-20150283

PATIENT
  Age: 79 Year
  Sex: Female
  Weight: 80 kg

DRUGS (17)
  1. REMERON [Concomitant]
     Active Substance: MIRTAZAPINE
     Dosage: 45 MG, 1 IN 1 D
     Route: 048
  2. ESOMEPRAZOLE [Concomitant]
     Active Substance: ESOMEPRAZOLE
     Dosage: DOSE NOT PROVIDED
     Route: 065
  3. LOSARTAN [Concomitant]
     Active Substance: LOSARTAN
     Dosage: DOSE NOT PROVIDED
     Route: 065
  4. MEMANTINE [Concomitant]
     Active Substance: MEMANTINE
     Dosage: DOSE NOT PROVIDED
     Route: 065
  5. CYANOCOBALAMIN. [Concomitant]
     Active Substance: CYANOCOBALAMIN
     Dosage: DOSE NOT PROVIDED
     Route: 065
  6. DILTIAZEM [Suspect]
     Active Substance: DILTIAZEM
     Dosage: 30 MG, 3 IN 1 D
     Route: 048
     Dates: start: 20150328, end: 20150331
  7. RESONIUM [Suspect]
     Active Substance: SODIUM POLYSTYRENE SULFONATE
     Dosage: 15 GM, 1 IN 1 D
     Route: 048
     Dates: start: 20150328, end: 20150330
  8. FOLIC ACID. [Suspect]
     Active Substance: FOLIC ACID
     Dosage: 5 MG, 1 IN 1 D
     Route: 048
     Dates: start: 20150327
  9. RED BLOOD CELLS [Concomitant]
     Active Substance: HUMAN RED BLOOD CELL
     Dosage: 4 UNITS
  10. FERINJECT [Suspect]
     Active Substance: FERRIC CARBOXYMALTOSE
     Dosage: 500 MG
     Route: 041
     Dates: start: 20150330, end: 20150330
  11. CEFTRIAXONE. [Concomitant]
     Active Substance: CEFTRIAXONE
     Dosage: 2 GM, 1 IN 1 D
     Route: 041
     Dates: start: 20150330
  12. NEXIUM [Suspect]
     Active Substance: ESOMEPRAZOLE MAGNESIUM
     Dosage: 40 MG, 2 IN 1 D
     Route: 041
     Dates: start: 20150326
  13. RISPERDAL [Concomitant]
     Active Substance: RISPERIDONE
     Dosage: 0.25 MG, 2 IN 1 D
     Route: 048
  14. DISTRANEURIN [Concomitant]
     Active Substance: CLOMETHIAZOLE
     Dosage: 300 MG, 1 IN 1 D
     Route: 048
  15. VITARUBIN [Suspect]
     Active Substance: CYANOCOBALAMIN
     Dosage: 1 MG, 1 IN 1 D
     Route: 058
     Dates: start: 20150328, end: 20150331
  16. COLECALCIFEROL [Concomitant]
     Active Substance: CHOLECALCIFEROL
     Dosage: 1 DPSAGE FORM, 1 IN 1 D
     Route: 048
  17. DAFALGAN [Suspect]
     Active Substance: ACETAMINOPHEN
     Dosage: 100 MG, 3 IN 1 D
     Route: 048
     Dates: start: 20150331

REACTIONS (3)
  - Acute generalised exanthematous pustulosis [Recovering/Resolving]
  - Discomfort [Unknown]
  - Malaise [Recovering/Resolving]

NARRATIVE: CASE EVENT DATE: 20150330
